FAERS Safety Report 7944088-X (Version None)
Quarter: 2011Q4

REPORT INFORMATION
  Report Type: 
  Country: None (occurrence: None)
  Receive Date: 20111128
  Receipt Date: 20111123
  Transmission Date: 20120403
  Serious: Yes (Life-Threatening)
  Sender: FDA-Public Use
  Company Number: TN-ASTRAZENECA-2011SE69915

PATIENT
  Age: 3 Month
  Sex: Male

DRUGS (1)
  1. LIDOCAINE [Suspect]
     Indication: LOCAL ANAESTHESIA
     Route: 058

REACTIONS (4)
  - GRAND MAL CONVULSION [None]
  - OVERDOSE [None]
  - ATELECTASIS [None]
  - RESPIRATORY DEPRESSION [None]
